FAERS Safety Report 21670740 (Version 3)
Quarter: 2023Q1

REPORT INFORMATION
  Report Type: Report from Study
  Country: CZ (occurrence: CZ)
  Receive Date: 20221202
  Receipt Date: 20230315
  Transmission Date: 20230417
  Serious: Yes (Other)
  Sender: FDA-Public Use
  Company Number: CZ-002147023-NVSC2022CZ278010

PATIENT
  Age: 58 Year
  Sex: Male

DRUGS (13)
  1. TRAMETINIB [Suspect]
     Active Substance: TRAMETINIB
     Indication: Colorectal cancer
     Dosage: 1.5 MG, QD (1.5 MG, 1 IN 1 DAY)
     Route: 048
     Dates: start: 20221025
  2. TRAMETINIB [Suspect]
     Active Substance: TRAMETINIB
     Dosage: 1 MG, QD
     Route: 048
     Dates: start: 20221128
  3. NIVOLUMAB [Suspect]
     Active Substance: NIVOLUMAB
     Indication: Colorectal cancer
     Dosage: 17.03 MG, (477 MILLIGRAM(S), 1 IN 4 WEEK)
     Route: 042
     Dates: start: 20221025
  4. IPILIMUMAB [Suspect]
     Active Substance: IPILIMUMAB
     Indication: Colorectal cancer
     Dosage: 1.419 MG (79.5 MILLIGRAM(S), 1 IN 8 WEEK)
     Route: 042
     Dates: start: 20221025
  5. PERINDOPRIL ARGININE [Concomitant]
     Active Substance: PERINDOPRIL ARGININE
     Indication: Product used for unknown indication
     Dosage: 2.5 MG
     Route: 048
     Dates: start: 202201
  6. DEOXYMYKOIN [Concomitant]
     Indication: Rash
     Dosage: 100 MG
     Route: 048
     Dates: start: 20221107, end: 20221107
  7. DEOXYMYKOIN [Concomitant]
     Dosage: 200 MG
     Route: 048
     Dates: start: 20221108, end: 20221113
  8. DEOXYMYKOIN [Concomitant]
     Dosage: UNK
     Route: 065
     Dates: start: 20221114, end: 20221231
  9. LORATADINE [Concomitant]
     Active Substance: LORATADINE
     Indication: Rash
     Dosage: 10 MG
     Route: 048
     Dates: start: 20221108
  10. BETAMETHASONE VALERATE\FUSIDIC ACID [Concomitant]
     Active Substance: BETAMETHASONE VALERATE\FUSIDIC ACID
     Indication: Rash
     Dosage: UNK
     Route: 061
     Dates: start: 20221107
  11. BETAMETHASONE DIPROPIONATE [Concomitant]
     Active Substance: BETAMETHASONE DIPROPIONATE
     Indication: Rash
     Dosage: UNK
     Route: 061
     Dates: start: 20221107
  12. JARISCH [Concomitant]
     Indication: Rash
     Dosage: UNK
     Route: 061
     Dates: start: 20221107
  13. METRONIDAZOLE [Concomitant]
     Active Substance: METRONIDAZOLE
     Indication: Rash
     Dosage: UNK
     Route: 061
     Dates: start: 20221107

REACTIONS (1)
  - Detachment of retinal pigment epithelium [Not Recovered/Not Resolved]

NARRATIVE: CASE EVENT DATE: 20221121
